APPROVED DRUG PRODUCT: MOXIFLOXACIN HYDROCHLORIDE
Active Ingredient: MOXIFLOXACIN HYDROCHLORIDE
Strength: EQ 0.5% BASE
Dosage Form/Route: SOLUTION/DROPS;OPHTHALMIC
Application: A206242 | Product #001 | TE Code: AT1
Applicant: EUGIA PHARMA SPECIALITIES LTD
Approved: Oct 4, 2017 | RLD: No | RS: No | Type: RX